FAERS Safety Report 9722241 (Version 2)
Quarter: 2013Q4

REPORT INFORMATION
  Report Type: Spontaneous
  Country: US (occurrence: US)
  Receive Date: 20131202
  Receipt Date: 20131219
  Transmission Date: 20140711
  Serious: No
  Sender: FDA-Public Use
  Company Number: US-JNJFOC-20131111059

PATIENT
  Age: 62 Year
  Sex: Female

DRUGS (8)
  1. DURAGESIC [Suspect]
     Indication: PAIN
     Route: 062
  2. DURAGESIC [Suspect]
     Indication: PAIN
     Route: 062
  3. MELOXICAM [Concomitant]
     Route: 048
  4. RANITIDINE [Concomitant]
     Indication: DYSPEPSIA
     Route: 048
  5. DOXEPIN [Concomitant]
     Route: 048
  6. VITAMIN D [Concomitant]
     Dosage: 50.000 UNITS
     Route: 048
     Dates: start: 201311
  7. ASPIRIN [Concomitant]
     Route: 048
     Dates: start: 2011
  8. TEMAZEPAM [Concomitant]
     Indication: SLEEP DISORDER
     Route: 048

REACTIONS (5)
  - Drug prescribing error [Recovered/Resolved]
  - Back pain [Recovered/Resolved]
  - Poor quality drug administered [Unknown]
  - Drug dose omission [Unknown]
  - Product quality issue [Unknown]
